FAERS Safety Report 20500439 (Version 6)
Quarter: 2023Q1

REPORT INFORMATION
  Report Type: Spontaneous
  Country: DE (occurrence: DE)
  Receive Date: 20220222
  Receipt Date: 20230310
  Transmission Date: 20230417
  Serious: Yes (Hospitalization, Other)
  Sender: FDA-Public Use
  Company Number: DE-NOVARTISPH-NVSC2022DE038627

PATIENT
  Age: 56 Year
  Sex: Female

DRUGS (7)
  1. ACLASTA [Suspect]
     Active Substance: ZOLEDRONIC ACID
     Indication: Osteoporosis
     Dosage: 1 DOSAGE FORM
     Route: 065
     Dates: start: 202202, end: 202202
  2. ACLASTA [Suspect]
     Active Substance: ZOLEDRONIC ACID
     Indication: Rebound effect
  3. MARCUMAR [Concomitant]
     Active Substance: PHENPROCOUMON
     Indication: Deep vein thrombosis
     Dosage: UNK
     Route: 065
  4. LEVOTHYROXINE SODIUM [Concomitant]
     Active Substance: LEVOTHYROXINE SODIUM
     Indication: Product used for unknown indication
     Dosage: UNK UNK, QD
     Route: 065
     Dates: start: 2022
  5. PANTOPRAZOLE SODIUM [Concomitant]
     Active Substance: PANTOPRAZOLE SODIUM
     Indication: Product used for unknown indication
     Dosage: UNK UNK, QD
     Route: 065
     Dates: start: 2022
  6. MOVICOL [Concomitant]
     Active Substance: POLYETHYLENE GLYCOL 3350\POTASSIUM CHLORIDE\SODIUM BICARBONATE\SODIUM CHLORIDE
     Indication: Product used for unknown indication
     Dosage: 1 DOSAGE FORM, (53 G/25 ML)
     Route: 065
  7. METAMIZOLE [Concomitant]
     Active Substance: METAMIZOLE
     Indication: Product used for unknown indication
     Dosage: 1 DOSAGE FORM, (30 DROPS), TID
     Route: 065

REACTIONS (37)
  - Back pain [Recovered/Resolved]
  - Pain [Recovered/Resolved]
  - Gallbladder enlargement [Recovered/Resolved]
  - Arthralgia [Unknown]
  - Chest pain [Unknown]
  - Myelolipoma [Unknown]
  - Pain in extremity [Recovered/Resolved]
  - Haematoma [Unknown]
  - Aortic dilatation [Unknown]
  - Respiratory disorder [Unknown]
  - Renal cyst [Unknown]
  - Pancreatic calcification [Unknown]
  - Hepatic steatosis [Unknown]
  - Pleural effusion [Unknown]
  - Haemangioma of bone [Unknown]
  - Pancreatic disorder [Unknown]
  - Blood potassium decreased [Unknown]
  - Glomerular filtration rate increased [Unknown]
  - Lipase increased [Unknown]
  - Blood thyroid stimulating hormone decreased [Unknown]
  - Prothrombin level decreased [Recovering/Resolving]
  - Activated partial thromboplastin time prolonged [Recovering/Resolving]
  - White blood cell count decreased [Recovered/Resolved]
  - Red blood cell count increased [Not Recovered/Not Resolved]
  - Mean cell volume decreased [Recovering/Resolving]
  - Thyroid mass [Unknown]
  - Platelet count decreased [Recovered/Resolved]
  - Influenza like illness [Recovered/Resolved]
  - Dyspnoea [Recovered/Resolved]
  - Myalgia [Recovered/Resolved]
  - Chills [Recovered/Resolved]
  - Abdominal pain upper [Unknown]
  - Gastrooesophageal reflux disease [Unknown]
  - C-reactive protein increased [Unknown]
  - Blood urea decreased [Unknown]
  - Mean cell haemoglobin concentration decreased [Unknown]
  - Product use in unapproved indication [Unknown]

NARRATIVE: CASE EVENT DATE: 20220101
